FAERS Safety Report 18264994 (Version 2)
Quarter: 2020Q4

REPORT INFORMATION
  Report Type: Spontaneous
  Country: US (occurrence: US)
  Receive Date: 20200914
  Receipt Date: 20201009
  Transmission Date: 20210113
  Serious: Yes (Hospitalization)
  Sender: FDA-Public Use
  Company Number: US-JNJFOC-A-US2020-207688

PATIENT
  Age: 48 Year
  Sex: Female
  Weight: 69.46 kg

DRUGS (4)
  1. VELETRI [Suspect]
     Active Substance: EPOPROSTENOL
     Indication: PULMONARY HYPERTENSION
     Dosage: 10 NG/KG, PER MIN
     Route: 042
  2. ADEMPAS [Concomitant]
     Active Substance: RIOCIGUAT
  3. WARFARIN [Concomitant]
     Active Substance: WARFARIN
  4. VELETRI [Suspect]
     Active Substance: EPOPROSTENOL
     Dosage: 15 NG/KG, PER MIN
     Route: 042

REACTIONS (16)
  - Headache [Recovered/Resolved]
  - Feeling hot [Unknown]
  - Pain in extremity [Unknown]
  - Dizziness [Unknown]
  - Catheter site pruritus [Unknown]
  - Abdominal pain upper [Recovered/Resolved]
  - Nausea [Recovered/Resolved]
  - Pain in jaw [Unknown]
  - Paraesthesia [Unknown]
  - Vomiting [Recovered/Resolved]
  - Flushing [Unknown]
  - Diarrhoea [Not Recovered/Not Resolved]
  - Myalgia [Recovered/Resolved]
  - Rash papular [Unknown]
  - Blood pressure decreased [Unknown]
  - Hospitalisation [Unknown]
